FAERS Safety Report 23240625 (Version 3)
Quarter: 2024Q1

REPORT INFORMATION
  Report Type: Report from Study
  Country: US (occurrence: US)
  Receive Date: 20231129
  Receipt Date: 20240228
  Transmission Date: 20240409
  Serious: No
  Sender: FDA-Public Use
  Company Number: US-LUNDBECK-DKLU3070023

PATIENT
  Age: 54 Year
  Sex: Female

DRUGS (1)
  1. VYEPTI [Suspect]
     Active Substance: EPTINEZUMAB-JJMR
     Indication: Migraine
     Route: 041
     Dates: start: 20231107

REACTIONS (2)
  - Migraine [Recovered/Resolved]
  - Infusion site pain [Unknown]

NARRATIVE: CASE EVENT DATE: 20231108
